FAERS Safety Report 12921828 (Version 1)
Quarter: 2016Q4

REPORT INFORMATION
  Report Type: Spontaneous
  Country: US (occurrence: US)
  Receive Date: 20161108
  Receipt Date: 20161108
  Transmission Date: 20170207
  Serious: Yes (Other)
  Sender: FDA-Public Use
  Company Number: US-ELI_LILLY_AND_COMPANY-US201608012924

PATIENT
  Sex: Female

DRUGS (12)
  1. EXCEDRIN BACK AND BODY [Concomitant]
     Active Substance: ACETAMINOPHEN\ASPIRIN
     Dosage: 2 DF, QD
     Route: 065
  2. CURAMIN [Concomitant]
     Active Substance: HERBALS
     Dosage: 2 DF, EVERY 6 HRS
     Route: 065
  3. TRAMADOL. [Concomitant]
     Active Substance: TRAMADOL
     Dosage: 100 MG, TID
     Route: 065
  4. ULTRAN                             /01573601/ [Concomitant]
     Dosage: 50 MG, EVERY 4 HRS
     Route: 065
  5. NORCO [Concomitant]
     Active Substance: ACETAMINOPHEN\HYDROCODONE BITARTRATE
     Dosage: 10 MG, UNK
     Route: 065
  6. LORTAB [Concomitant]
     Active Substance: ACETAMINOPHEN\HYDROCODONE BITARTRATE
     Dosage: 1 DF, PRN
     Route: 065
  7. COSAMIN DS                         /07182401/ [Concomitant]
     Dosage: 1 DF, QD
     Route: 065
  8. FLEXERIL [Concomitant]
     Active Substance: CYCLOBENZAPRINE HYDROCHLORIDE
     Dosage: 10 MG, QD
     Route: 065
  9. NUCYNTA [Concomitant]
     Active Substance: TAPENTADOL HYDROCHLORIDE
     Dosage: 50 MG, EVERY 6 HRS
     Route: 065
  10. PERCOCET                           /00446701/ [Concomitant]
     Active Substance: ACETAMINOPHEN\OXYCODONE HYDROCHLORIDE\OXYCODONE TEREPHTHALATE
     Dosage: 1 DF, QID
     Route: 065
  11. CYMBALTA [Suspect]
     Active Substance: DULOXETINE HYDROCHLORIDE
     Indication: PRODUCT USED FOR UNKNOWN INDICATION
     Dosage: UNK, UNKNOWN
     Route: 048
     Dates: end: 200907
  12. CYMBALTA [Suspect]
     Active Substance: DULOXETINE HYDROCHLORIDE
     Dosage: 60 MG, QD
     Route: 048
     Dates: start: 20090723

REACTIONS (22)
  - Suicidal ideation [Unknown]
  - Lethargy [Unknown]
  - Drug withdrawal syndrome [Unknown]
  - Confusional state [Unknown]
  - Vertigo [Unknown]
  - Irritability [Unknown]
  - Insomnia [Unknown]
  - Balance disorder [Unknown]
  - Hypoaesthesia [Unknown]
  - Fatigue [Unknown]
  - Depressed mood [Unknown]
  - Dysphoria [Unknown]
  - Feeling abnormal [Unknown]
  - Paraesthesia [Unknown]
  - Agitation [Unknown]
  - Dizziness [Unknown]
  - Headache [Unknown]
  - Hyperhidrosis [Unknown]
  - Affect lability [Unknown]
  - Tremor [Unknown]
  - Tinnitus [Unknown]
  - Anxiety [Unknown]
